FAERS Safety Report 22059984 (Version 1)
Quarter: 2023Q1

REPORT INFORMATION
  Report Type: Spontaneous
  Country: SK (occurrence: SK)
  Receive Date: 20230303
  Receipt Date: 20230303
  Transmission Date: 20230417
  Serious: Yes (Other)
  Sender: FDA-Public Use
  Company Number: SK-BAXTER-2023BAX013951

PATIENT
  Age: 57 Year
  Sex: Male

DRUGS (1)
  1. DOXORUBICIN [Suspect]
     Active Substance: DOXORUBICIN
     Indication: Burkitt^s lymphoma
     Route: 065

REACTIONS (4)
  - Administration site extravasation [Recovered/Resolved]
  - Necrosis [Recovered/Resolved]
  - Medical device site oedema [Recovered/Resolved]
  - Erythema [Recovered/Resolved]
